FAERS Safety Report 18746836 (Version 1)
Quarter: 2021Q1

REPORT INFORMATION
  Report Type: Spontaneous
  Country: DE (occurrence: DE)
  Receive Date: 20210115
  Receipt Date: 20210115
  Transmission Date: 20210419
  Serious: Yes (Other)
  Sender: FDA-Public Use
  Company Number: DE-009507513-2101DEU007222

PATIENT
  Sex: Male
  Weight: 82 kg

DRUGS (5)
  1. ATORVASTATIN [Suspect]
     Active Substance: ATORVASTATIN
     Dosage: 1X
     Dates: start: 2006
  2. NIZOFENONE FUMARATE. [Suspect]
     Active Substance: NIZOFENONE FUMARATE
     Dosage: 1X
     Dates: start: 2013
  3. ASPIRIN. [Concomitant]
     Active Substance: ASPIRIN
     Dosage: UNK
     Dates: start: 2001
  4. RAXONE [Suspect]
     Active Substance: IDEBENONE
     Dosage: 1X
     Dates: start: 2013
  5. XELEVIA [Suspect]
     Active Substance: SITAGLIPTIN PHOSPHATE
     Dosage: 2 TABLETS DAILY
     Route: 048
     Dates: start: 2011

REACTIONS (5)
  - Functional gastrointestinal disorder [Not Recovered/Not Resolved]
  - Incorrect dosage administered [Unknown]
  - Fatigue [Not Recovered/Not Resolved]
  - Dementia [Not Recovered/Not Resolved]
  - Visual impairment [Not Recovered/Not Resolved]

NARRATIVE: CASE EVENT DATE: 201101
